FAERS Safety Report 19068266 (Version 1)
Quarter: 2021Q1

REPORT INFORMATION
  Report Type: Spontaneous
  Country: FR (occurrence: FR)
  Receive Date: 20210329
  Receipt Date: 20210329
  Transmission Date: 20210420
  Serious: Yes (Other)
  Sender: FDA-Public Use
  Company Number: FR-MYLANLABS-2021M1018183

PATIENT
  Age: 51 Year
  Sex: Female
  Weight: 59.1 kg

DRUGS (11)
  1. KARDEGIC [Concomitant]
     Active Substance: ASPIRIN DL-LYSINE
     Dosage: UNK
  2. CALCIPARINE [Concomitant]
     Active Substance: HEPARIN CALCIUM
     Dosage: UNK
  3. LANSOPRAZOLE MYLAN [Concomitant]
     Active Substance: LANSOPRAZOLE
     Dosage: UNK
  4. VITAMINE C ARROW [Concomitant]
     Active Substance: ASCORBIC ACID
     Dosage: UNK
  5. CORTANCYL [Concomitant]
     Active Substance: PREDNISONE
     Dosage: UNK
  6. LEDERFOLINE [Concomitant]
     Active Substance: LEUCOVORIN CALCIUM
     Dosage: UNK
  7. FLUCONAZOLE ARROW [Concomitant]
     Active Substance: FLUCONAZOLE
     Dosage: UNK
  8. VANCOMYCINE MYLAN 500 MG POUDRE POUR SOLUTION POUR PERFUSION [Suspect]
     Active Substance: VANCOMYCIN
     Indication: PRODUCT USED FOR UNKNOWN INDICATION
     Dosage: 1500 MILLIGRAM, QW
     Route: 042
     Dates: start: 20200622
  9. PHOSPHONEUROS [Concomitant]
     Active Substance: CALCIUM PHOSPHATE, DIBASIC, ANHYDROUS\MAGNESIUM GLYCEROPHOSPHATE\PHOSPHORIC ACID\SODIUM PHOSPHATE, DIBASIC
     Dosage: UNK
  10. CEFTAZIDIME MYLAN [Suspect]
     Active Substance: CEFTAZIDIME
     Indication: PRODUCT USED FOR UNKNOWN INDICATION
     Dosage: 3 DOSAGE FORM, QW
     Route: 042
     Dates: start: 20200622
  11. ARANESP [Concomitant]
     Active Substance: DARBEPOETIN ALFA
     Dosage: UNK

REACTIONS (1)
  - Clostridium difficile colitis [Recovered/Resolved]

NARRATIVE: CASE EVENT DATE: 20200720
